FAERS Safety Report 5051875-7 (Version None)
Quarter: 2006Q3

REPORT INFORMATION
  Report Type: 
  Country: None (occurrence: None)
  Receive Date: 20060713
  Receipt Date: 20060713
  Transmission Date: 20061208
  Serious: Yes (Other)
  Sender: FDA-Public Use
  Company Number: None

PATIENT
  Age: 70 Year
  Sex: Female
  Weight: 55.3388 kg

DRUGS (6)
  1. DETROL [Suspect]
     Indication: HYPERTONIC BLADDER
     Dosage: 2 MG BID
     Dates: start: 20060516, end: 20060702
  2. DIAZEPAM [Concomitant]
  3. CIPRODEX [Concomitant]
  4. ACETAMINOPHEN [Concomitant]
  5. LIDODERM [Concomitant]
  6. ES TYLENOL [Concomitant]

REACTIONS (6)
  - CONSTIPATION [None]
  - DEPRESSED LEVEL OF CONSCIOUSNESS [None]
  - INFLUENZA LIKE ILLNESS [None]
  - MASS [None]
  - SINUS CONGESTION [None]
  - SKIN ODOUR ABNORMAL [None]
